FAERS Safety Report 9474551 (Version 2)
Quarter: 2013Q3

REPORT INFORMATION
  Report Type: Spontaneous
  Country: US (occurrence: US)
  Receive Date: 20130823
  Receipt Date: 20130823
  Transmission Date: 20140515
  Serious: Yes (Hospitalization)
  Sender: FDA-Public Use
  Company Number: US-GLAXOSMITHKLINE-A0658932A

PATIENT
  Age: 61 Year
  Sex: Female
  Weight: 70.5 kg

DRUGS (11)
  1. AVANDIA [Suspect]
     Indication: TYPE 2 DIABETES MELLITUS
     Dosage: 4MG PER DAY
     Route: 048
     Dates: start: 200304, end: 200706
  2. METFORMIN [Concomitant]
  3. GEMFIBROZIL [Concomitant]
  4. CRESTOR [Concomitant]
  5. ZETIA [Concomitant]
  6. EVISTA [Concomitant]
  7. GLUCOPHAGE [Concomitant]
  8. METFORMIN [Concomitant]
  9. CRESTOR [Concomitant]
  10. ZETIA [Concomitant]
  11. GEMFIBROZIL [Concomitant]

REACTIONS (8)
  - Foot fracture [Unknown]
  - Fracture [Unknown]
  - Ligament sprain [Unknown]
  - Foot fracture [Unknown]
  - Humerus fracture [Unknown]
  - Ligament injury [Unknown]
  - Fat tissue increased [Unknown]
  - Weight increased [Unknown]
